FAERS Safety Report 6338695-8 (Version None)
Quarter: 2009Q3

REPORT INFORMATION
  Report Type: 
  Country: None (occurrence: None)
  Receive Date: 20090903
  Receipt Date: 20070827
  Transmission Date: 20100115
  Serious: Yes (Hospitalization, Other)
  Sender: FDA-Public Use
  Company Number: US-ASTRAZENECA-2007UW25287

PATIENT
  Age: 18316 Day
  Sex: Female
  Weight: 79.8 kg

DRUGS (11)
  1. SEROQUEL [Suspect]
     Indication: BIPOLAR DISORDER
     Dosage: 300 - 1200 MG
     Route: 048
     Dates: start: 20030814
  2. SEROQUEL [Suspect]
     Dosage: 600-1200 MG
     Route: 048
     Dates: start: 20030816, end: 20060201
  3. RISPERDAL [Concomitant]
     Dates: start: 19990501
  4. LITHIUM CARBONATE [Concomitant]
     Dates: start: 20040101, end: 20050101
  5. LITHIUM CARBONATE [Concomitant]
     Dates: start: 20050314
  6. DEPAKOTE [Concomitant]
     Dates: start: 19990101
  7. NEURONTIN [Concomitant]
     Indication: ANXIETY
     Dates: start: 20050425
  8. NEURONTIN [Concomitant]
     Indication: PANIC REACTION
     Dates: start: 20050425
  9. TRAZODONE [Concomitant]
     Dates: start: 20030903
  10. LIPITOR [Concomitant]
     Dates: start: 20030903
  11. BENICAR [Concomitant]
     Dates: start: 20030903

REACTIONS (8)
  - ABDOMINAL PAIN [None]
  - ANGINA UNSTABLE [None]
  - CATHETERISATION CARDIAC [None]
  - DIABETES MELLITUS INADEQUATE CONTROL [None]
  - DIABETIC KETOACIDOSIS [None]
  - HYPERGLYCAEMIA [None]
  - STENT PLACEMENT [None]
  - TYPE 1 DIABETES MELLITUS [None]
